FAERS Safety Report 4877047-4 (Version None)
Quarter: 2006Q1

REPORT INFORMATION
  Report Type: 
  Country: None (occurrence: None)
  Receive Date: 20060110
  Receipt Date: 20051207
  Transmission Date: 20060701
  Serious: Yes (Hospitalization)
  Sender: FDA-Public Use
  Company Number: US-MERCK-0512USA00943

PATIENT
  Age: 63 Year
  Sex: Female
  Weight: 84 kg

DRUGS (9)
  1. VIOXX [Suspect]
     Indication: ARTHRITIS
     Route: 048
     Dates: start: 19990801, end: 20040201
  2. MAXZIDE [Concomitant]
     Route: 065
  3. SULAR [Concomitant]
     Route: 065
  4. PROTONIX [Concomitant]
     Route: 065
  5. DIOVAN [Concomitant]
     Route: 065
  6. ACIPHEX [Concomitant]
     Route: 065
  7. URIMAR-T [Concomitant]
     Route: 065
  8. [THERAPY UNSPECIFIED] [Concomitant]
     Route: 065
  9. DETROL LA [Concomitant]
     Route: 065

REACTIONS (2)
  - ADVERSE EVENT [None]
  - CEREBROVASCULAR ACCIDENT [None]
